FAERS Safety Report 7766685-7 (Version None)
Quarter: 2011Q3

REPORT INFORMATION
  Report Type: 
  Country: None (occurrence: None)
  Receive Date: 20110922
  Receipt Date: 20110908
  Transmission Date: 20111222
  Serious: Yes (Hospitalization)
  Sender: FDA-Public Use
  Company Number: US-JNJFOC-20110904092

PATIENT
  Age: 75 Year
  Sex: Female
  Weight: 44.45 kg

DRUGS (2)
  1. BENADRYL [Suspect]
     Route: 048
  2. BENADRYL [Suspect]
     Indication: ARTHROPOD STING
     Dosage: ONE, EVERY 4-5 HOURS
     Route: 048
     Dates: start: 20010802, end: 20110803

REACTIONS (3)
  - VERTIGO [None]
  - PRODUCT QUALITY ISSUE [None]
  - OFF LABEL USE [None]
